FAERS Safety Report 6561577-3 (Version None)
Quarter: 2010Q1

REPORT INFORMATION
  Report Type: 
  Country: None (occurrence: None)
  Receive Date: 20100130
  Receipt Date: 20091020
  Transmission Date: 20100710
  Serious: Yes (Hospitalization, Other)
  Sender: FDA-Public Use
  Company Number: US-ABBOTT-09P-163-0604325-00

PATIENT
  Sex: Female
  Weight: 68.1 kg

DRUGS (21)
  1. HUMIRA [Suspect]
     Indication: RHEUMATOID ARTHRITIS
     Route: 058
  2. LAMICTAL [Concomitant]
     Indication: DRUG USE FOR UNKNOWN INDICATION
  3. LEVOTHYROXINE SODIUM [Concomitant]
     Indication: DRUG USE FOR UNKNOWN INDICATION
  4. LEXAPRO [Concomitant]
     Indication: DRUG USE FOR UNKNOWN INDICATION
     Dosage: TAKES 2 PILLS 20MG IN AM AND 10MG IN PM DAILY
     Route: 048
  5. MINOCYCLINE HCL [Concomitant]
     Indication: DRUG USE FOR UNKNOWN INDICATION
  6. PREMARIN [Concomitant]
     Indication: DRUG USE FOR UNKNOWN INDICATION
  7. VICODIN [Concomitant]
     Indication: DRUG USE FOR UNKNOWN INDICATION
  8. LIPITOR [Concomitant]
     Indication: DRUG USE FOR UNKNOWN INDICATION
  9. METOPROLOL [Concomitant]
     Indication: DRUG USE FOR UNKNOWN INDICATION
  10. EVISTA [Concomitant]
     Indication: DRUG USE FOR UNKNOWN INDICATION
  11. FOLIC ACID [Concomitant]
     Indication: DRUG USE FOR UNKNOWN INDICATION
  12. ASTELIN [Concomitant]
     Indication: DRUG USE FOR UNKNOWN INDICATION
  13. LETAIRIS [Concomitant]
     Indication: DRUG USE FOR UNKNOWN INDICATION
  14. PRESCRIPTION ASPIRIN [Concomitant]
     Indication: DRUG USE FOR UNKNOWN INDICATION
  15. ZOLPIDEM TARTRATE [Concomitant]
     Indication: DRUG USE FOR UNKNOWN INDICATION
  16. NYSTATIN [Concomitant]
     Indication: DRUG USE FOR UNKNOWN INDICATION
  17. DULCOLAX [Concomitant]
     Indication: DRUG USE FOR UNKNOWN INDICATION
  18. PREMASOLIS [Concomitant]
     Indication: DRUG USE FOR UNKNOWN INDICATION
  19. CALCIUM PHOLOCARPOPHILIS [Concomitant]
     Indication: DRUG USE FOR UNKNOWN INDICATION
  20. EXCEDRIN (MIGRAINE) [Concomitant]
     Indication: DRUG USE FOR UNKNOWN INDICATION
  21. DEVOLON [Concomitant]
     Indication: HYPERSENSITIVITY

REACTIONS (4)
  - DIZZINESS [None]
  - FALL [None]
  - HEAD INJURY [None]
  - RESPIRATORY DISORDER [None]
